FAERS Safety Report 15643467 (Version 1)
Quarter: 2018Q4

REPORT INFORMATION
  Report Type: Spontaneous
  Country: IT (occurrence: IT)
  Receive Date: 20181121
  Receipt Date: 20181121
  Transmission Date: 20190205
  Serious: Yes (Other)
  Sender: FDA-Public Use
  Company Number: PHHY2018IT159688

PATIENT
  Age: 30 Year
  Sex: Male

DRUGS (1)
  1. RISPERIDONE SANDOZ GMBH [Suspect]
     Active Substance: RISPERIDONE
     Indication: PRODUCT USED FOR UNKNOWN INDICATION
     Dosage: 2 ML, QD
     Route: 048
     Dates: start: 20171012, end: 20171130

REACTIONS (2)
  - Irritability [Unknown]
  - Insomnia [Unknown]
